FAERS Safety Report 5027778-0 (Version None)
Quarter: 2006Q2

REPORT INFORMATION
  Report Type: 
  Country: None (occurrence: None)
  Receive Date: 20060614
  Receipt Date: 20060614
  Transmission Date: 20061013
  Serious: Yes (Death, Hospitalization)
  Sender: FDA-Public Use
  Company Number: None

PATIENT
  Sex: Male
  Weight: 61.36 kg

DRUGS (9)
  1. CYCLOPHOSPHAMIDE [Suspect]
  2. FLUDARABINE [Suspect]
  3. MELPHALAN [Suspect]
  4. METHOTREXATE [Suspect]
  5. TACROLIMUS [Suspect]
  6. ACYCLOVIR [Concomitant]
  7. CELLCEPT [Concomitant]
  8. PREDNISONE [Concomitant]
  9. PROGRAF [Concomitant]

REACTIONS (4)
  - BLOOD CULTURE POSITIVE [None]
  - CARDIO-RESPIRATORY ARREST [None]
  - RESPIRATORY FAILURE [None]
  - STREPTOCOCCAL INFECTION [None]
